FAERS Safety Report 9224294 (Version 1)
Quarter: 2013Q2

REPORT INFORMATION
  Report Type: Spontaneous
  Country: US (occurrence: None)
  Receive Date: 20130409
  Receipt Date: 20130409
  Transmission Date: 20140414
  Serious: Yes (Other)
  Sender: FDA-Public Use
  Company Number: None

PATIENT
  Sex: Male
  Weight: 48.08 kg

DRUGS (1)
  1. HEPARIN [Suspect]
     Indication: THROMBOSIS PROPHYLAXIS
     Dates: start: 20100904, end: 2012

REACTIONS (5)
  - Angina pectoris [None]
  - Condition aggravated [None]
  - Angina pectoris [None]
  - Contraindication to medical treatment [None]
  - No therapeutic response [None]
